FAERS Safety Report 5399958-6 (Version None)
Quarter: 2007Q3

REPORT INFORMATION
  Report Type: 
  Country: None (occurrence: None)
  Receive Date: 20070727
  Receipt Date: 20070727
  Transmission Date: 20080115
  Serious: Yes (Other)
  Sender: FDA-Public Use
  Company Number: None

PATIENT
  Sex: Male
  Weight: 98.4306 kg

DRUGS (2)
  1. ZYVOX [Suspect]
     Indication: CHOLANGITIS
     Dosage: 600MG TWICE DAILY BY MOUTH (ONE DOSE)
     Route: 048
     Dates: start: 20070706
  2. ZYVOX [Suspect]
     Indication: LIVER ABSCESS
     Dosage: 600MG TWICE DAILY BY MOUTH (ONE DOSE)
     Route: 048
     Dates: start: 20070706

REACTIONS (3)
  - ERYTHEMA [None]
  - OEDEMA PERIPHERAL [None]
  - URTICARIA [None]
